FAERS Safety Report 4809132-7 (Version None)
Quarter: 2005Q4

REPORT INFORMATION
  Report Type: 
  Country: None (occurrence: None)
  Receive Date: 20051024
  Receipt Date: 20051024
  Transmission Date: 20060501
  Serious: Yes (Hospitalization, Other)
  Sender: FDA-Public Use
  Company Number: None

PATIENT
  Age: 50 Year
  Sex: Female
  Weight: 88 kg

DRUGS (10)
  1. LISINOPRIL [Suspect]
     Indication: HYPERTENSION
     Dosage: 40 MG DAILY
     Dates: start: 20050301
  2. TOPROL-XL [Concomitant]
  3. OMEPRAZOLE [Concomitant]
  4. URSODIOL [Concomitant]
  5. SEREVENT [Concomitant]
  6. MONELUKAST [Concomitant]
  7. ALBUTEROL NEBS + MDI [Concomitant]
  8. BIAXIN [Concomitant]
  9. MAG + KCL SUPPLEMENTS [Concomitant]
  10. TOPICAL CREAMS [Concomitant]

REACTIONS (1)
  - SWELLING FACE [None]
